FAERS Safety Report 5808027-X (Version None)
Quarter: 2008Q3

REPORT INFORMATION
  Report Type: 
  Country: None (occurrence: None)
  Receive Date: 20080711
  Receipt Date: 20080701
  Transmission Date: 20090109
  Serious: Yes (Other)
  Sender: FDA-Public Use
  Company Number: US-PFIZER INC-2008055538

PATIENT
  Sex: Female
  Weight: 63.636 kg

DRUGS (4)
  1. CELEBREX [Suspect]
     Indication: MIGRAINE
  2. IBUPROFEN [Suspect]
     Indication: HEADACHE
  3. IBUPROFEN [Suspect]
     Indication: PAIN
  4. PREMPRO [Concomitant]

REACTIONS (4)
  - ARTHRALGIA [None]
  - ARTHROPATHY [None]
  - CARTILAGE INJURY [None]
  - MIGRAINE [None]
